FAERS Safety Report 6774157-1 (Version None)
Quarter: 2010Q2

REPORT INFORMATION
  Report Type: 
  Country: None (occurrence: None)
  Receive Date: 20100616
  Receipt Date: 20100616
  Transmission Date: 20101027
  Serious: Yes (Disabling)
  Sender: FDA-Public Use
  Company Number: None

PATIENT
  Age: 77 Year
  Sex: Male
  Weight: 93.441 kg

DRUGS (1)
  1. SULFAMETHOXAZOLE/TRIMETHAPRIM [Suspect]

REACTIONS (1)
  - DYSPNOEA [None]
